FAERS Safety Report 4757728-3 (Version None)
Quarter: 2005Q3

REPORT INFORMATION
  Report Type: 
  Country: None (occurrence: None)
  Receive Date: 20050830
  Receipt Date: 20050727
  Transmission Date: 20060218
  Serious: Yes (Other)
  Sender: FDA-Public Use
  Company Number: 1871

PATIENT
  Age: 54 Year
  Sex: Female

DRUGS (3)
  1. ONTAK [Suspect]
     Indication: CHRONIC LYMPHOCYTIC LEUKAEMIA
     Dates: start: 20020801, end: 20020901
  2. ONTAK [Suspect]
     Indication: CHRONIC LYMPHOCYTIC LEUKAEMIA
     Dates: start: 20040501, end: 20040101
  3. ONTAK [Suspect]
     Indication: CHRONIC LYMPHOCYTIC LEUKAEMIA
     Dates: start: 20050301, end: 20050101

REACTIONS (10)
  - ANGIOPATHY [None]
  - CARDIAC TAMPONADE [None]
  - HYPOGAMMAGLOBULINAEMIA [None]
  - LYMPHADENOPATHY [None]
  - OPTIC DISC DISORDER [None]
  - PAPILLOEDEMA [None]
  - PERICARDIAL EFFUSION [None]
  - POLYCYTHAEMIA [None]
  - VISUAL ACUITY REDUCED [None]
  - VISUAL DISTURBANCE [None]
